FAERS Safety Report 9557368 (Version 2)
Quarter: 2013Q3

REPORT INFORMATION
  Report Type: Spontaneous
  Country: US (occurrence: US)
  Receive Date: 20130926
  Receipt Date: 20130926
  Transmission Date: 20140515
  Serious: No
  Sender: FDA-Public Use
  Company Number: US-PFIZER INC-US-WYE-H14676410

PATIENT
  Age: 39 Year
  Sex: Female

DRUGS (4)
  1. ENBREL [Suspect]
     Indication: JUVENILE IDIOPATHIC ARTHRITIS
     Dosage: 25 MG, TWICE WEEKLY
     Route: 058
     Dates: start: 20010101
  2. ENBREL [Suspect]
     Dosage: 50 MG, UNK
  3. ENBREL [Suspect]
     Indication: JUVENILE IDIOPATHIC ARTHRITIS
     Dosage: UNK
  4. METHOTREXATE SODIUM [Suspect]
     Indication: JUVENILE IDIOPATHIC ARTHRITIS
     Dosage: UNK
     Dates: start: 2008, end: 2008

REACTIONS (5)
  - Liver function test abnormal [Recovered/Resolved]
  - Injection site pain [Unknown]
  - Injection site discomfort [Unknown]
  - Sinusitis [Not Recovered/Not Resolved]
  - Injection site bruising [Recovered/Resolved]
